FAERS Safety Report 8332201-4 (Version None)
Quarter: 2012Q2

REPORT INFORMATION
  Report Type: 
  Country: None (occurrence: None)
  Receive Date: 20120503
  Receipt Date: 20120427
  Transmission Date: 20120825
  Serious: Yes (Hospitalization)
  Sender: FDA-Public Use
  Company Number: US-BIOGENIDEC-2012BI014785

PATIENT
  Sex: Female
  Weight: 74 kg

DRUGS (5)
  1. HYDROCHLOROTHIAZIDE [Concomitant]
     Route: 048
  2. LOSARTAN POTASSIUM [Concomitant]
     Route: 048
  3. AVONEX [Suspect]
     Indication: MULTIPLE SCLEROSIS
     Route: 030
     Dates: start: 20080417
  4. METOPROLOL TARTRATE [Concomitant]
     Route: 048
  5. NORTRIPTYLINE HCL [Concomitant]

REACTIONS (2)
  - HYPERTENSION [None]
  - TRANSIENT ISCHAEMIC ATTACK [None]
